FAERS Safety Report 8780117 (Version 1)
Quarter: 2012Q4

REPORT INFORMATION
  Report Type: Spontaneous
  Country: US (occurrence: None)
  Receive Date: 20120904
  Receipt Date: 20120904
  Transmission Date: 20130627
  Serious: Yes (Hospitalization)
  Sender: FDA-Public Use
  Company Number: None

PATIENT
  Age: 75 Year
  Sex: Male
  Weight: 99.6 kg

DRUGS (2)
  1. LENALIDOMIDE [Suspect]
     Indication: B-CELL LYMPHOMA
     Dates: start: 20120806
  2. EVEROLIMUS [Suspect]
     Indication: B-CELL LYMPHOMA
     Dates: start: 20120806

REACTIONS (5)
  - Urethral obstruction [None]
  - Atrial fibrillation [None]
  - Retroperitoneal lymphadenopathy [None]
  - Hydronephrosis [None]
  - Disease progression [None]
